FAERS Safety Report 25508292 (Version 1)
Quarter: 2025Q3

REPORT INFORMATION
  Report Type: Spontaneous
  Country: CA (occurrence: CA)
  Receive Date: 20250703
  Receipt Date: 20250703
  Transmission Date: 20251020
  Serious: Yes (Other)
  Sender: AMICUS THERAPEUTICS
  Company Number: CA-AMICUS THERAPEUTICS, INC.-AMI_4139

PATIENT

DRUGS (1)
  1. MIGALASTAT HYDROCHLORIDE [Suspect]
     Active Substance: MIGALASTAT HYDROCHLORIDE
     Indication: Fabry^s disease
     Route: 048

REACTIONS (1)
  - Renal impairment [Unknown]
